FAERS Safety Report 14479198 (Version 1)
Quarter: 2018Q1

REPORT INFORMATION
  Report Type: Spontaneous
  Country: US (occurrence: US)
  Receive Date: 20180202
  Receipt Date: 20180202
  Transmission Date: 20180509
  Serious: Yes (Hospitalization, Other)
  Sender: FDA-Public Use
  Company Number: US-ASTRAZENECA-2018SE10739

PATIENT
  Age: 61 Year
  Sex: Female
  Weight: 77.7 kg

DRUGS (4)
  1. OMEPRAZOLE. [Suspect]
     Active Substance: OMEPRAZOLE
     Indication: GASTROOESOPHAGEAL REFLUX DISEASE
     Dosage: GENERIC 20 MG, TWO TIMES A DAY
     Route: 048
  2. CARAFATE [Concomitant]
     Active Substance: SUCRALFATE
     Dosage: GENERIC 1 MG, THREE TIMES A DAY WITH MEALS
     Route: 048
  3. NEXIUM [Suspect]
     Active Substance: ESOMEPRAZOLE MAGNESIUM
     Route: 048
  4. CARAFATE [Concomitant]
     Active Substance: SUCRALFATE
     Dosage: 1 MG, THREE TIMES A DAY WITH MEALS
     Route: 048

REACTIONS (3)
  - Lung neoplasm malignant [Unknown]
  - Oesophagitis [Unknown]
  - Hepatic cancer [Unknown]

NARRATIVE: CASE EVENT DATE: 2016
